FAERS Safety Report 6649398-4 (Version None)
Quarter: 2010Q1

REPORT INFORMATION
  Report Type: 
  Country: None (occurrence: None)
  Receive Date: 20100324
  Receipt Date: 20100314
  Transmission Date: 20100710
  Serious: Yes (Other)
  Sender: FDA-Public Use
  Company Number: DE-ABBOTT-10P-062-0630906-00

PATIENT
  Sex: Male
  Weight: 113 kg

DRUGS (3)
  1. REDUCTIL [Suspect]
     Indication: OBESITY
     Dates: start: 20080101, end: 20080101
  2. REDUCTIL [Suspect]
     Dates: start: 20080101, end: 20090101
  3. REDUCTIL [Suspect]
     Dates: start: 20090101, end: 20090101

REACTIONS (3)
  - CAROTID ARTERY STENOSIS [None]
  - CEREBROVASCULAR ACCIDENT [None]
  - OEDEMA PERIPHERAL [None]
